FAERS Safety Report 22604734 (Version 1)
Quarter: 2023Q2

REPORT INFORMATION
  Report Type: Spontaneous
  Country: FR (occurrence: FR)
  Receive Date: 20230615
  Receipt Date: 20230615
  Transmission Date: 20230721
  Serious: Yes (Other)
  Sender: FDA-Public Use
  Company Number: None

PATIENT
  Age: 69 Year
  Sex: Female

DRUGS (2)
  1. TRAMADOL [Suspect]
     Active Substance: TRAMADOL
     Indication: Product used for unknown indication
     Dosage: 200 TO 600 MG OR MORE (1 TO 3 TAB OF 200 MG /DAY)
     Route: 048
     Dates: start: 202108
  2. ACETAMINOPHEN\CODEINE PHOSPHATE [Suspect]
     Active Substance: ACETAMINOPHEN\CODEINE PHOSPHATE
     Indication: Product used for unknown indication
     Dosage: UP TO 6 TABS IN 1 HOUR
     Route: 048
     Dates: start: 202209

REACTIONS (1)
  - Drug use disorder [Not Recovered/Not Resolved]
